FAERS Safety Report 8137384-7 (Version None)
Quarter: 2012Q1

REPORT INFORMATION
  Report Type: 
  Country: None (occurrence: None)
  Receive Date: 20120103
  Receipt Date: 20111014
  Transmission Date: 20120608
  Serious: No
  Sender: FDA-Public Use
  Company Number: AE-2011-002329

PATIENT
  Age: 61 Year
  Sex: Male
  Weight: 74.8435 kg

DRUGS (10)
  1. DIOVAN HCT (CO-DIOVAN) [Concomitant]
  2. MULTIVITAMIN [Concomitant]
  3. PEGASYS (PEGINERFERON ALFA-2A) [Concomitant]
  4. LIPITOR [Concomitant]
  5. WELLBUTRIN [Concomitant]
  6. INCIVEK [Suspect]
     Dosage: 2250 MG (750 MG, 1 IN 8 HR), ORAL
     Route: 048
     Dates: start: 20110918
  7. RIBAVIRIN [Concomitant]
  8. LOVAZA [Concomitant]
  9. IBUPROFEN (ADVIL) [Concomitant]
  10. LIVILO (CHOLESTEROL - AND TRIGLYCERIDE REDUCERS) [Concomitant]

REACTIONS (10)
  - EMOTIONAL DISORDER [None]
  - COUGH [None]
  - ABDOMINAL PAIN UPPER [None]
  - HEADACHE [None]
  - INSOMNIA [None]
  - NAUSEA [None]
  - VISION BLURRED [None]
  - EATING DISORDER [None]
  - DYSGEUSIA [None]
  - APATHY [None]
